FAERS Safety Report 15624868 (Version 1)
Quarter: 2018Q4

REPORT INFORMATION
  Report Type: Spontaneous
  Country: US (occurrence: US)
  Receive Date: 20181116
  Receipt Date: 20181116
  Transmission Date: 20190205
  Serious: Yes (Other)
  Sender: FDA-Public Use
  Company Number: PHHY2018US152024

PATIENT
  Age: 25 Year
  Sex: Male

DRUGS (1)
  1. ENOXAPARIN [Suspect]
     Active Substance: ENOXAPARIN
     Indication: PRODUCT USED FOR UNKNOWN INDICATION
     Dosage: 31 VIALS OF 80MG OF ENOXAPARIN (TOTAL OF 2480 MG)
     Route: 065

REACTIONS (4)
  - Intentional self-injury [Unknown]
  - Tachycardia [Unknown]
  - Intentional overdose [Unknown]
  - Injection site haematoma [Unknown]
